FAERS Safety Report 8218631-X (Version None)
Quarter: 2012Q1

REPORT INFORMATION
  Report Type: 
  Country: None (occurrence: None)
  Receive Date: 20120319
  Receipt Date: 20120229
  Transmission Date: 20120608
  Serious: No
  Sender: FDA-Public Use
  Company Number: US-ROXANE LABORATORIES, INC.-2012-RO-00753RO

PATIENT
  Sex: Female

DRUGS (1)
  1. CALCIUM ACETATE [Suspect]
     Indication: BLOOD CALCIUM DECREASED
     Dosage: 2001 MG
     Route: 048

REACTIONS (2)
  - DIZZINESS [None]
  - NAUSEA [None]
